FAERS Safety Report 10683940 (Version 1)
Quarter: 2014Q4

REPORT INFORMATION
  Report Type: Report from Study
  Country: US (occurrence: US)
  Receive Date: 20141230
  Receipt Date: 20141230
  Transmission Date: 20150529
  Serious: Yes (Other)
  Sender: FDA-Public Use
  Company Number: US-ACTELION-A-US2014-110204

PATIENT
  Sex: Male

DRUGS (1)
  1. VELETRI [Suspect]
     Active Substance: EPOPROSTENOL
     Indication: EXPOSURE DURING PREGNANCY
     Dosage: 28 NG/KG, PER MIN
     Route: 064

REACTIONS (1)
  - Maternal exposure during pregnancy [Unknown]
